FAERS Safety Report 7628551-7 (Version None)
Quarter: 2011Q3

REPORT INFORMATION
  Report Type: 
  Country: None (occurrence: None)
  Receive Date: 20110720
  Receipt Date: 20110720
  Transmission Date: 20111222
  Serious: Yes (Other)
  Sender: FDA-Public Use
  Company Number: None

PATIENT
  Sex: Female
  Weight: 16.2 kg

DRUGS (1)
  1. KEPPRA [Suspect]
     Indication: EPILEPSY
     Dosage: 2ML BID PO
     Route: 048

REACTIONS (3)
  - PRODUCT SUBSTITUTION ISSUE [None]
  - TREATMENT FAILURE [None]
  - CONVULSION [None]
